FAERS Safety Report 9918019 (Version 2)
Quarter: 2014Q1

REPORT INFORMATION
  Report Type: Spontaneous
  Country: US (occurrence: US)
  Receive Date: 20140222
  Receipt Date: 20140222
  Transmission Date: 20141002
  Serious: Yes (Other)
  Sender: FDA-Public Use
  Company Number: US-GE HEALTHCARE MEDICAL DIAGNOSTICS-OSCN-PR-1011S-0279

PATIENT
  Age: 43 Year
  Sex: Female

DRUGS (13)
  1. OMNISCAN [Suspect]
     Indication: LIVER DISORDER
     Route: 042
     Dates: start: 20020327, end: 20020327
  2. OMNISCAN [Suspect]
     Indication: PRODUCT USED FOR UNKNOWN INDICATION
     Route: 042
     Dates: start: 20050517, end: 20050517
  3. ENBREL [Concomitant]
     Dates: start: 200408
  4. INDOCIN [Concomitant]
     Dates: start: 20050803
  5. PLAQUENIL [Concomitant]
     Dates: start: 20051020
  6. PREDNISONE [Concomitant]
     Dates: start: 20051020
  7. TRIAMCINOLONE [Concomitant]
     Dates: start: 20051020
  8. AZULFIDINE [Concomitant]
     Dates: start: 20060524
  9. METHOTREXATE [Concomitant]
     Dates: start: 20060524
  10. KENALOG [Concomitant]
     Dates: start: 20061009
  11. CLOBETASOL [Concomitant]
     Dates: start: 20071210
  12. IMURAN [Concomitant]
     Dates: start: 20080520
  13. DOVONEX [Concomitant]
     Dates: start: 20080903

REACTIONS (1)
  - Nephrogenic systemic fibrosis [Not Recovered/Not Resolved]
